FAERS Safety Report 5143480-9 (Version None)
Quarter: 2006Q4

REPORT INFORMATION
  Report Type: 
  Country: None (occurrence: None)
  Receive Date: 20061103
  Receipt Date: 20041118
  Transmission Date: 20070319
  Serious: Yes (Hospitalization)
  Sender: FDA-Public Use
  Company Number: JP-GLAXOSMITHKLINE-B0357481A

PATIENT
  Age: 50 Year
  Sex: Male

DRUGS (1)
  1. ZOVIRAX [Suspect]
     Indication: HERPES ZOSTER
     Dosage: 4000MG PER DAY
     Route: 048
     Dates: start: 20010919, end: 20010923

REACTIONS (21)
  - AGITATION [None]
  - ASTHENIA [None]
  - DELIRIUM [None]
  - DISORIENTATION [None]
  - DIZZINESS [None]
  - DRUG TOXICITY [None]
  - DYSARTHRIA [None]
  - DYSKINESIA [None]
  - DYSPHASIA [None]
  - HEADACHE [None]
  - INCOHERENT [None]
  - LOGORRHOEA [None]
  - MOVEMENT DISORDER [None]
  - NERVOUS SYSTEM DISORDER [None]
  - NUCHAL RIGIDITY [None]
  - OVERDOSE [None]
  - PAIN [None]
  - QUADRIPLEGIA [None]
  - RASH ERYTHEMATOUS [None]
  - RESTLESSNESS [None]
  - SOMNOLENCE [None]
